FAERS Safety Report 10587536 (Version 1)
Quarter: 2014Q4

REPORT INFORMATION
  Report Type: Spontaneous
  Country: US (occurrence: US)
  Receive Date: 20141117
  Receipt Date: 20141117
  Transmission Date: 20150529
  Serious: Yes (Other)
  Sender: FDA-Public Use
  Company Number: US-BAYER-2014-168662

PATIENT
  Sex: Female

DRUGS (1)
  1. MIRENA [Suspect]
     Active Substance: LEVONORGESTREL
     Dosage: 20 MCG/24HR, CONT
     Route: 015
     Dates: start: 200807, end: 20101126

REACTIONS (5)
  - Emotional distress [None]
  - Injury [None]
  - Abdominal pain [None]
  - Uterine perforation [None]
  - Vaginal haemorrhage [None]
